FAERS Safety Report 25682541 (Version 1)
Quarter: 2025Q3

REPORT INFORMATION
  Report Type: Spontaneous
  Country: JP (occurrence: JP)
  Receive Date: 20250814
  Receipt Date: 20250814
  Transmission Date: 20251021
  Serious: Yes (Other)
  Sender: TAKEDA
  Company Number: JP-TAKEDA-2025TUS069387

PATIENT
  Age: 70 Year
  Sex: Male

DRUGS (8)
  1. BRIGATINIB [Suspect]
     Active Substance: BRIGATINIB
     Indication: Lung adenocarcinoma
  2. CARBOPLATIN [Concomitant]
     Active Substance: CARBOPLATIN
  3. PEMETREXED [Concomitant]
     Active Substance: PEMETREXED
  4. LORLATINIB [Concomitant]
     Active Substance: LORLATINIB
  5. ALECTINIB [Concomitant]
     Active Substance: ALECTINIB
     Dosage: 600 MILLIGRAM, QD
  6. DOCETAXEL [Concomitant]
     Active Substance: DOCETAXEL
  7. PEMBROLIZUMAB [Concomitant]
     Active Substance: PEMBROLIZUMAB
  8. GIMERACIL\OTERACIL\TEGAFUR [Concomitant]
     Active Substance: GIMERACIL\OTERACIL POTASSIUM\TEGAFUR

REACTIONS (1)
  - Lung adenocarcinoma [Unknown]
